FAERS Safety Report 5913627-2 (Version None)
Quarter: 2008Q4

REPORT INFORMATION
  Report Type: 
  Country: None (occurrence: None)
  Receive Date: 20081009
  Receipt Date: 20081003
  Transmission Date: 20090506
  Serious: Yes (Other)
  Sender: FDA-Public Use
  Company Number: US-BAYER-200834938NA

PATIENT
  Sex: Female
  Weight: 59 kg

DRUGS (1)
  1. YASMIN [Suspect]
     Indication: AMENORRHOEA
     Route: 048
     Dates: start: 20070101, end: 20080929

REACTIONS (3)
  - BLINDNESS UNILATERAL [None]
  - FATIGUE [None]
  - MOOD SWINGS [None]
